FAERS Safety Report 13585647 (Version 1)
Quarter: 2017Q2

REPORT INFORMATION
  Report Type: Spontaneous
  Country: ES (occurrence: ES)
  Receive Date: 20170526
  Receipt Date: 20170526
  Transmission Date: 20170830
  Serious: Yes (Life-Threatening, Hospitalization)
  Sender: FDA-Public Use
  Company Number: ES-PFIZER INC-2017227997

PATIENT
  Age: 64 Year
  Sex: Female

DRUGS (2)
  1. TOMUDEX [Suspect]
     Active Substance: RALTITREXED
     Indication: COLON CANCER STAGE III
     Dosage: UNK
     Route: 042
     Dates: start: 20161004, end: 20170202
  2. OXALIPLATIN. [Suspect]
     Active Substance: OXALIPLATIN
     Indication: COLON CANCER STAGE III
     Dosage: 95 MG, CYCLIC (6 DOSES EVERY 4 MONTHS)
     Route: 042
     Dates: start: 20161004, end: 20170202

REACTIONS (2)
  - Toxicity to various agents [Unknown]
  - Guillain-Barre syndrome [Recovered/Resolved with Sequelae]

NARRATIVE: CASE EVENT DATE: 20170310
